FAERS Safety Report 16880535 (Version 1)
Quarter: 2019Q4

REPORT INFORMATION
  Report Type: Spontaneous
  Country: US (occurrence: US)
  Receive Date: 20191002
  Receipt Date: 20191002
  Transmission Date: 20200122
  Serious: Yes (Hospitalization)
  Sender: FDA-Public Use
  Company Number: None

PATIENT
  Age: 58 Year
  Sex: Male

DRUGS (2)
  1. CAPECITABINE. [Suspect]
     Active Substance: CAPECITABINE
     Indication: BONE CANCER
     Route: 048
     Dates: start: 20190821
  2. OXYCODONE [Concomitant]
     Active Substance: OXYCODONE

REACTIONS (2)
  - Nausea [None]
  - Visual impairment [None]
